FAERS Safety Report 16992548 (Version 1)
Quarter: 2019Q4

REPORT INFORMATION
  Report Type: Spontaneous
  Country: US (occurrence: US)
  Receive Date: 20191105
  Receipt Date: 20191105
  Transmission Date: 20200122
  Serious: No
  Sender: FDA-Public Use
  Company Number: US-AMGEN-USASP2019180957

PATIENT
  Age: 90 Year
  Sex: Female

DRUGS (5)
  1. PROLIA [Suspect]
     Active Substance: DENOSUMAB
     Indication: OSTEOPOROTIC FRACTURE
     Dosage: 60 MILLIGRAM, Q6MO
     Route: 065
     Dates: start: 20180904
  2. OSCAL [CALCITRIOL] [Concomitant]
     Indication: BLOOD CALCIUM DECREASED
     Dosage: UNK UNK, QD
  3. PROLIA [Suspect]
     Active Substance: DENOSUMAB
     Indication: OSTEOPOROSIS
  4. OSCAL [CALCITRIOL] [Concomitant]
     Dosage: UNK UNK, BID (FOR WEEK)
  5. OSCAL [CALCITRIOL] [Concomitant]
     Dosage: UNK (INCREASED TO 4 TABLETS)

REACTIONS (1)
  - Blood calcium decreased [Unknown]

NARRATIVE: CASE EVENT DATE: 20191024
